FAERS Safety Report 21682684 (Version 1)
Quarter: 2022Q4

REPORT INFORMATION
  Report Type: Spontaneous
  Country: CN (occurrence: CN)
  Receive Date: 20221205
  Receipt Date: 20221205
  Transmission Date: 20230113
  Serious: Yes (Hospitalization)
  Sender: FDA-Public Use
  Company Number: CN-BAYER-2022A162565

PATIENT
  Age: 72 Year
  Sex: Female

DRUGS (1)
  1. STIVARGA [Suspect]
     Active Substance: REGORAFENIB
     Indication: Hepatic cancer
     Dosage: 80MG AND 120MG ALTERNATED
     Route: 048
     Dates: start: 202207, end: 202211

REACTIONS (3)
  - Limb injury [None]
  - Palmar-plantar erythrodysaesthesia syndrome [None]
  - Off label use [None]

NARRATIVE: CASE EVENT DATE: 20220701
